FAERS Safety Report 10891773 (Version 2)
Quarter: 2015Q1

REPORT INFORMATION
  Report Type: Spontaneous
  Country: US (occurrence: US)
  Receive Date: 20150306
  Receipt Date: 20150331
  Transmission Date: 20150721
  Serious: Yes (Other)
  Sender: FDA-Public Use
  Company Number: US-ELI_LILLY_AND_COMPANY-US201503001281

PATIENT
  Age: 37 Year
  Sex: Male
  Weight: 87.53 kg

DRUGS (1)
  1. HUMALOG [Suspect]
     Active Substance: INSULIN LISPRO
     Indication: PRODUCT USED FOR UNKNOWN INDICATION
     Dosage: UNK
     Route: 058

REACTIONS (3)
  - Hypoglycaemic unconsciousness [Recovering/Resolving]
  - Blood glucose increased [Unknown]
  - Hypoglycaemia unawareness [Recovering/Resolving]

NARRATIVE: CASE EVENT DATE: 20150301
